FAERS Safety Report 5165295-8 (Version None)
Quarter: 2006Q4

REPORT INFORMATION
  Report Type: 
  Country: None (occurrence: None)
  Receive Date: 20061124
  Receipt Date: 20061115
  Transmission Date: 20070319
  Serious: Yes (Other)
  Sender: FDA-Public Use
  Company Number: 2006142497

PATIENT
  Age: 50 Year
  Sex: Male

DRUGS (1)
  1. XALATAN [Suspect]
     Dosage: INTRAOCULAR
     Route: 031
     Dates: start: 20040601

REACTIONS (1)
  - EYELID PTOSIS [None]
